FAERS Safety Report 13132873 (Version 1)
Quarter: 2017Q1

REPORT INFORMATION
  Report Type: Spontaneous
  Country: US (occurrence: US)
  Receive Date: 20170119
  Receipt Date: 20170119
  Transmission Date: 20170428
  Serious: No
  Sender: FDA-Public Use
  Company Number: None

PATIENT
  Age: 25 Year
  Sex: Female
  Weight: 55.35 kg

DRUGS (2)
  1. GENERIC BACTRIM [Suspect]
     Active Substance: SULFAMETHOXAZOLE\TRIMETHOPRIM
     Indication: URINARY TRACT INFECTION
     Route: 048
     Dates: start: 20170118, end: 20170118
  2. GENERIC LEXAPRO [Suspect]
     Active Substance: ESCITALOPRAM OXALATE

REACTIONS (6)
  - Night sweats [None]
  - Chest discomfort [None]
  - Drug interaction [None]
  - Headache [None]
  - Nightmare [None]
  - Delusion [None]

NARRATIVE: CASE EVENT DATE: 20170119
